FAERS Safety Report 9733270 (Version 2)
Quarter: 2014Q1

REPORT INFORMATION
  Report Type: Spontaneous
  Country: GB (occurrence: GB)
  Receive Date: 20131205
  Receipt Date: 20140321
  Transmission Date: 20141002
  Serious: Yes (Death, Other)
  Sender: FDA-Public Use
  Company Number: PHHY2013GB136579

PATIENT
  Age: 65 Year
  Sex: Female
  Weight: 68 kg

DRUGS (6)
  1. ANASTROZOLE [Suspect]
     Indication: BREAST CANCER
     Dosage: 1 MG, QD
     Route: 048
     Dates: start: 20130726
  2. ATENOLOL [Concomitant]
     Indication: HYPERTENSION
     Dosage: 3 MG, UNK
     Route: 048
     Dates: start: 20130708
  3. AMLODIPINE [Concomitant]
     Indication: HYPERTENSION
     Dosage: 5 MG, UNK
     Route: 048
     Dates: start: 20130708
  4. INDAPAMIDE [Concomitant]
     Indication: HYPERTENSION
     Dosage: 25 MG, UNK
     Route: 048
     Dates: start: 20130801, end: 20130829
  5. RAMIPRIL [Concomitant]
     Indication: HYPERTENSION
     Dosage: 1.25 MG, UNK
     Route: 048
     Dates: start: 20130821, end: 20130918
  6. IBUPROFEN [Concomitant]
     Dates: start: 20130822, end: 20130919

REACTIONS (2)
  - Ischaemic stroke [Fatal]
  - Hair growth abnormal [Unknown]
